FAERS Safety Report 9276178 (Version 1)
Quarter: 2012Q4

REPORT INFORMATION
  Report Type: Spontaneous
  Country: US (occurrence: None)
  Receive Date: 20121109
  Receipt Date: 20121109
  Transmission Date: 20130627
  Serious: Yes (Other)
  Sender: FDA-Public Use
  Company Number: 2012S1000405

PATIENT
  Age: 77 Year
  Sex: Male

DRUGS (6)
  1. CUBICIN [Suspect]
     Indication: ARTHRITIS INFECTIVE
  2. CUBICIN [Suspect]
     Indication: STAPHYLOCOCCAL INFECTION
  3. CUBICIN [Suspect]
     Indication: DEVICE RELATED INFECTION
  4. LINEZOLID [Concomitant]
  5. VANCOMYCIN [Concomitant]
  6. OXACLLIN [Concomitant]

REACTIONS (5)
  - Blood creatine phosphokinase increased [None]
  - Drug resistance [None]
  - Drug hypersensitivity [None]
  - Joint swelling [None]
  - Arthralgia [None]
